FAERS Safety Report 9000794 (Version 1)
Quarter: 2012Q4

REPORT INFORMATION
  Report Type: Spontaneous
  Country: US (occurrence: None)
  Receive Date: 20121226
  Receipt Date: 20121226
  Transmission Date: 20130627
  Serious: Yes (Other)
  Sender: FDA-Public Use
  Company Number: DSA_61525_2012

PATIENT
  Age: 66 Year
  Sex: Female

DRUGS (4)
  1. FLUOROURACIL [Suspect]
     Indication: RECTAL CANCER
     Dosage: (DF)
  2. OXALIPLATIN [Suspect]
     Indication: RECTAL CANCER
     Dosage: (DF)
  3. FOLINIC ACID [Suspect]
     Indication: RECTAL CANCER
     Dosage: (DF)
  4. BEVACIZUMAB [Suspect]
     Indication: RECTAL CANCER
     Dosage: (DF)

REACTIONS (5)
  - Gastrointestinal perforation [None]
  - Disease recurrence [None]
  - Rectal cancer [None]
  - Gastrointestinal fistula [None]
  - Arthralgia [None]
